FAERS Safety Report 23412188 (Version 2)
Quarter: 2025Q3

REPORT INFORMATION
  Report Type: Spontaneous
  Country: US (occurrence: US)
  Receive Date: 20240117
  Receipt Date: 20250821
  Transmission Date: 20251020
  Serious: Yes (Other)
  Sender: NOVO NORDISK
  Company Number: US-NOVOPROD-1083590

PATIENT
  Age: 66 Year
  Sex: Female
  Weight: 99.773 kg

DRUGS (9)
  1. OZEMPIC [Suspect]
     Active Substance: SEMAGLUTIDE
     Route: 058
  2. OZEMPIC [Suspect]
     Active Substance: SEMAGLUTIDE
     Indication: Product use in unapproved indication
     Route: 058
  3. NOVOLOG [Suspect]
     Active Substance: INSULIN ASPART
     Indication: Product used for unknown indication
  4. NOVOLOG [Suspect]
     Active Substance: INSULIN ASPART
  5. BASAGLAR [Suspect]
     Active Substance: INSULIN GLARGINE
     Indication: Product used for unknown indication
  6. BASAGLAR [Suspect]
     Active Substance: INSULIN GLARGINE
  7. RECORLEV [Suspect]
     Active Substance: LEVOKETOCONAZOLE
     Dosage: 150 MG, QD
  8. RECORLEV [Suspect]
     Active Substance: LEVOKETOCONAZOLE
     Indication: Cushing^s syndrome
     Dates: start: 20220804
  9. VITAMINS NOS [Suspect]
     Active Substance: VITAMINS
     Indication: Product used for unknown indication

REACTIONS (15)
  - Tooth injury [Not Recovered/Not Resolved]
  - Fractured coccyx [Unknown]
  - Fall [Unknown]
  - Pain [Unknown]
  - Nausea [Unknown]
  - Hair growth abnormal [Unknown]
  - Hyperhidrosis [Unknown]
  - Hair colour changes [Unknown]
  - Sciatica [Unknown]
  - Dysphagia [Unknown]
  - Fluid retention [Not Recovered/Not Resolved]
  - Blood cholesterol increased [Not Recovered/Not Resolved]
  - Biopsy thyroid gland abnormal [Unknown]
  - Pain [Unknown]
  - Dizziness [Not Recovered/Not Resolved]

NARRATIVE: CASE EVENT DATE: 20220814
